FAERS Safety Report 7117044 (Version 2)
Quarter: 2014Q1

REPORT INFORMATION
  Report Type: Spontaneous
  Country: US (occurrence: US)
  Receive Date: 20090917
  Receipt Date: 20140122
  Transmission Date: 20141002
  Serious: Yes (Other)
  Sender: FDA-Public Use
  Company Number: US-JNJFOC-20090904332

PATIENT
  Age: 42 Year
  Sex: Male
  Weight: 73.94 kg

DRUGS (4)
  1. DURAGESIC [Suspect]
     Indication: ARTHRALGIA
     Route: 062
     Dates: start: 200809
  2. DURAGESIC [Suspect]
     Indication: MYALGIA
     Route: 062
     Dates: start: 200809
  3. LORTAB [Concomitant]
     Indication: PAIN
     Route: 048
     Dates: start: 2002
  4. SOMA [Concomitant]
     Indication: MYALGIA
     Dosage: AS NEEDED
     Route: 048

REACTIONS (8)
  - Injection site infection [Recovered/Resolved]
  - Product packaging issue [Unknown]
  - Nasal congestion [Not Recovered/Not Resolved]
  - Ear discomfort [Not Recovered/Not Resolved]
  - Pain [Not Recovered/Not Resolved]
  - Drug ineffective [Not Recovered/Not Resolved]
  - Extra dose administered [Not Recovered/Not Resolved]
  - Treatment noncompliance [Not Recovered/Not Resolved]
